FAERS Safety Report 10957695 (Version 1)
Quarter: 2015Q1

REPORT INFORMATION
  Report Type: Spontaneous
  Country: US (occurrence: US)
  Receive Date: 20150326
  Receipt Date: 20150326
  Transmission Date: 20150721
  Serious: No
  Sender: FDA-Public Use
  Company Number: US-009507513-1503USA004020

PATIENT
  Sex: Female

DRUGS (1)
  1. NUVARING [Suspect]
     Active Substance: ETHINYL ESTRADIOL\ETONOGESTREL
     Dosage: 1 RING , 3 WEEKS IN 1 WEEK OUT
     Route: 067

REACTIONS (5)
  - Breast tenderness [Unknown]
  - Breast pain [Unknown]
  - Abdominal pain [Unknown]
  - Headache [Unknown]
  - Incorrect drug administration duration [Unknown]
